FAERS Safety Report 6080487-1 (Version None)
Quarter: 2009Q1

REPORT INFORMATION
  Report Type: 
  Country: None (occurrence: None)
  Receive Date: 20090217
  Receipt Date: 20090205
  Transmission Date: 20090719
  Serious: Yes (Death, Life-Threatening, Other)
  Sender: FDA-Public Use
  Company Number: US-ROCHE-612858

PATIENT
  Age: 40 Year
  Sex: Male

DRUGS (10)
  1. RIBAVIRIN [Suspect]
     Indication: HEPATITIS C
     Route: 065
  2. GLYBURIDE [Suspect]
     Route: 065
  3. EPOGEN [Suspect]
     Route: 065
  4. INTERFERON ALFA-2B [Suspect]
     Indication: HEPATITIS C
     Dosage: DOSE: 1.5-3.0 MILLION UNITS
     Route: 065
  5. CYCLOSPORINE [Suspect]
     Route: 065
  6. CYCLOSPORINE [Suspect]
     Dosage: DOSE REDUCED
     Route: 065
  7. SIROLIMUS [Suspect]
     Route: 065
  8. PREDNISONE [Suspect]
     Dosage: TAPERED OFF BY 6 MONTHS POST-TRANSPLANT
     Route: 065
  9. FILGRASTIM [Concomitant]
     Indication: NEUTROPENIA
  10. AMPHOTERICIN B [Concomitant]
     Indication: ZYGOMYCOSIS
     Route: 042

REACTIONS (7)
  - BLINDNESS [None]
  - HAEMOLYTIC ANAEMIA [None]
  - NEOPLASM MALIGNANT [None]
  - NEUTROPENIA [None]
  - RENAL FAILURE [None]
  - TRANSPLANT REJECTION [None]
  - ZYGOMYCOSIS [None]
